FAERS Safety Report 7331677-9 (Version None)
Quarter: 2011Q1

REPORT INFORMATION
  Report Type: 
  Country: None (occurrence: None)
  Receive Date: 20110304
  Receipt Date: 20110211
  Transmission Date: 20110831
  Serious: Yes (Other)
  Sender: FDA-Public Use
  Company Number: US-BAYER-2010-002055

PATIENT
  Sex: Male

DRUGS (8)
  1. ALPRAZOLAM [Concomitant]
     Dosage: 0.25 MG, TID AS NEEDED
  2. OMNIPAQUE 140 [Concomitant]
     Dosage: 145 ML, UNK
     Dates: start: 19981015
  3. HYTRIN [Concomitant]
     Dosage: 5 MG, QD
  4. PLAVIX [Concomitant]
     Dosage: 75 MG, UNK
  5. DOXEPIN [Concomitant]
     Indication: NIGHTMARE
     Dosage: 50 MG, QD
  6. NITROL [Concomitant]
     Dosage: 1 INCH
  7. TRASYLOL [Suspect]
     Indication: SURGERY
     Dosage: UNK
     Route: 042
     Dates: start: 19981001
  8. ATENOLOL [Concomitant]
     Dosage: 100 MG, QD

REACTIONS (6)
  - GENERAL PHYSICAL HEALTH DETERIORATION [None]
  - EMOTIONAL DISTRESS [None]
  - INJURY [None]
  - PAIN [None]
  - CEREBROVASCULAR ACCIDENT [None]
  - ANXIETY [None]
